FAERS Safety Report 19646404 (Version 1)
Quarter: 2021Q3

REPORT INFORMATION
  Report Type: Spontaneous
  Country: GB (occurrence: GB)
  Receive Date: 20210802
  Receipt Date: 20210802
  Transmission Date: 20211014
  Serious: Yes (Other)
  Sender: FDA-Public Use
  Company Number: GB-MYLANLABS-2021M1045501

PATIENT
  Age: 50 Year
  Sex: Male
  Weight: 58 kg

DRUGS (12)
  1. QVAR [Concomitant]
     Active Substance: BECLOMETHASONE DIPROPIONATE
     Dosage: 1 DOSAGE FORM, BID (INHALE)
     Dates: start: 20180626, end: 20210413
  2. SALBUTAMOL ARROW [Concomitant]
     Active Substance: ALBUTEROL
     Dosage: 2 DOSAGE FORM (PUFFS)
     Dates: start: 20180626
  3. FLUCLOXACILLIN [Concomitant]
     Active Substance: FLUCLOXACILLIN
     Dosage: 1 DOSAGE FORM, QID
     Dates: start: 20210710
  4. LACTULOSE. [Concomitant]
     Active Substance: LACTULOSE
     Dosage: TAKE UP TO 15ML TWICE DAILY
     Dates: start: 20201224
  5. MATRIFEN [Concomitant]
     Active Substance: FENTANYL
     Dosage: APPLY
     Dates: start: 20181017
  6. BETNOVATE [Concomitant]
     Active Substance: BETAMETHASONE
     Dosage: USE AS DIRECTED
     Dates: start: 20180626
  7. HYDROCORTISONE. [Concomitant]
     Active Substance: HYDROCORTISONE
     Dosage: APPLY AS DIRECTED
     Dates: start: 20180626
  8. FOSTAIR [Concomitant]
     Active Substance: BECLOMETHASONE\FORMOTEROL
     Dosage: 2 DOSAGE FORM, BID (PUFFS)
     Dates: start: 20210413
  9. DOXYCYCLINE. [Suspect]
     Active Substance: DOXYCYCLINE
     Indication: INFECTION
     Dosage: TAKE TWO NOW, THEN ONE DAILY
     Dates: start: 20210709
  10. PARACETAMOL [Concomitant]
     Active Substance: ACETAMINOPHEN
     Dosage: 2 DOSAGE FORM, QID (WHEN REQUIRED)
     Dates: start: 20180626
  11. SENNA                              /00142201/ [Concomitant]
     Active Substance: SENNA LEAF
     Dosage: TAKE 1 OR 2 AT NIGHT
     Dates: start: 20180626
  12. VORICONAZOLE. [Concomitant]
     Active Substance: VORICONAZOLE
     Dosage: HOSPITAL ONLY?FOR 6/52
     Dates: start: 20201212

REACTIONS (3)
  - Nausea [Unknown]
  - Malaise [Unknown]
  - Vomiting [Unknown]

NARRATIVE: CASE EVENT DATE: 20210710
